FAERS Safety Report 14331917 (Version 1)
Quarter: 2017Q4

REPORT INFORMATION
  Report Type: Spontaneous
  Country: US (occurrence: US)
  Receive Date: 20171227
  Receipt Date: 20171227
  Transmission Date: 20180321
  Serious: Yes (Disabling)
  Sender: FDA-Public Use
  Company Number: None

PATIENT
  Age: 71 Year
  Sex: Female
  Weight: 70.2 kg

DRUGS (8)
  1. REMEROL [Concomitant]
  2. ADIVASTIN [Concomitant]
  3. VITAMIN D [Concomitant]
     Active Substance: CHOLECALCIFEROL
  4. FORAZEMIDE [Concomitant]
  5. LORAZAPAM [Concomitant]
     Active Substance: LORAZEPAM
  6. TYLENOL [Concomitant]
     Active Substance: ACETAMINOPHEN
  7. CYMBALTA [Suspect]
     Active Substance: DULOXETINE HYDROCHLORIDE
     Indication: NEUROPATHY PERIPHERAL
     Dosage: ?          QUANTITY:1 CAPSULE(S);?
     Dates: start: 20171208, end: 20171227
  8. ATENOLOL. [Concomitant]
     Active Substance: ATENOLOL

REACTIONS (1)
  - Haemorrhage [None]
